FAERS Safety Report 5160213-0 (Version None)
Quarter: 2006Q4

REPORT INFORMATION
  Report Type: 
  Country: None (occurrence: None)
  Receive Date: 20061120
  Receipt Date: 20061107
  Transmission Date: 20070319
  Serious: Yes (Other)
  Sender: FDA-Public Use
  Company Number: CHPA2006US11147

PATIENT
  Age: 70 Year
  Sex: Male
  Weight: 74.4 kg

DRUGS (5)
  1. EXCEDRIN EXTRA STRENGTH (NCH) (CAFFEINE CITRATE, ACETYLSALICYLIC ACID, [Suspect]
     Indication: MUSCLE ATROPHY
     Dosage: SEE IMAGE
     Route: 048
     Dates: end: 20061103
  2. EXCEDRIN EXTRA STRENGTH (NCH) (CAFFEINE CITRATE, ACETYLSALICYLIC ACID, [Suspect]
     Indication: MUSCLE ATROPHY
     Dosage: SEE IMAGE
     Route: 048
     Dates: start: 19961001
  3. EXCEDRIN EXTRA STRENGTH (NCH) (CAFFEINE CITRATE, ACETYLSALICYLIC ACID, [Suspect]
     Indication: MUSCLE ATROPHY
     Dosage: SEE IMAGE
     Route: 048
     Dates: end: 20061103
  4. EXCEDRIN EXTRA STRENGTH (NCH) (CAFFEINE CITRATE, ACETYLSALICYLIC ACID, [Suspect]
     Indication: MUSCLE ATROPHY
     Dosage: SEE IMAGE
     Route: 048
     Dates: start: 19961001
  5. WARFARIN SODIUM [Concomitant]

REACTIONS (5)
  - DRUG ABUSER [None]
  - DRUG INEFFECTIVE [None]
  - HEADACHE [None]
  - MYALGIA [None]
  - SELF-MEDICATION [None]
